FAERS Safety Report 7375978-7 (Version None)
Quarter: 2011Q1

REPORT INFORMATION
  Report Type: 
  Country: None (occurrence: None)
  Receive Date: 20110325
  Receipt Date: 20110315
  Transmission Date: 20110831
  Serious: Yes (Hospitalization, Other)
  Sender: FDA-Public Use
  Company Number: PHHY2011US02342

PATIENT
  Sex: Male

DRUGS (1)
  1. GILENYA [Suspect]
     Indication: MULTIPLE SCLEROSIS
     Dosage: 0.5 MG, QD
     Route: 048
     Dates: start: 20101210

REACTIONS (7)
  - ARTHRITIS [None]
  - DYSSTASIA [None]
  - JOINT INJURY [None]
  - FALL [None]
  - BALANCE DISORDER [None]
  - JOINT LOCK [None]
  - CELLULITIS [None]
